FAERS Safety Report 9189142 (Version 3)
Quarter: 2014Q2

REPORT INFORMATION
  Report Type: Spontaneous
  Country: US (occurrence: US)
  Receive Date: 20130326
  Receipt Date: 20140508
  Transmission Date: 20141212
  Serious: No
  Sender: FDA-Public Use
  Company Number: US-009507513-1303USA010430

PATIENT
  Sex: Male

DRUGS (2)
  1. PROPECIA [Suspect]
     Indication: ANDROGENETIC ALOPECIA
     Dosage: 1 MG, UNK
     Route: 048
     Dates: start: 199906, end: 201203
  2. FINASTERIDE [Suspect]
     Indication: ANDROGENETIC ALOPECIA
     Dosage: 1 MG, UNK
     Dates: start: 199906, end: 201203

REACTIONS (13)
  - Cognitive disorder [Not Recovered/Not Resolved]
  - Muscle strain [Unknown]
  - Erectile dysfunction [Unknown]
  - Sexual dysfunction [Not Recovered/Not Resolved]
  - Testicular pain [Unknown]
  - Arthralgia [Unknown]
  - Musculoskeletal pain [Unknown]
  - Seasonal allergy [Unknown]
  - Scrotal cyst [Not Recovered/Not Resolved]
  - Abdominal pain upper [Unknown]
  - Transaminases increased [Unknown]
  - Blood lactate dehydrogenase increased [Unknown]
  - Deficiency anaemia [Unknown]
